FAERS Safety Report 11522234 (Version 1)
Quarter: 2015Q3

REPORT INFORMATION
  Report Type: Spontaneous
  Country: US (occurrence: US)
  Receive Date: 20150918
  Receipt Date: 20150918
  Transmission Date: 20151125
  Serious: Yes (Other)
  Sender: FDA-Public Use
  Company Number: US-ROCHE-752518

PATIENT
  Age: 58 Year
  Sex: Male
  Weight: 127.9 kg

DRUGS (2)
  1. PEGASYS [Suspect]
     Active Substance: PEGINTERFERON ALFA-2A
     Indication: HEPATITIS C
     Route: 065
  2. COPEGUS [Suspect]
     Active Substance: RIBAVIRIN
     Indication: HEPATITIS C
     Dosage: IN DIVIDED DOSES 3/3
     Route: 065

REACTIONS (2)
  - Dry skin [Unknown]
  - Weight decreased [Unknown]

NARRATIVE: CASE EVENT DATE: 20101209
